FAERS Safety Report 13183434 (Version 1)
Quarter: 2017Q1

REPORT INFORMATION
  Report Type: Spontaneous
  Country: US (occurrence: US)
  Receive Date: 20170203
  Receipt Date: 20170203
  Transmission Date: 20170428
  Serious: No
  Sender: FDA-Public Use
  Company Number: US-ASTRAZENECA-2017SE09467

PATIENT
  Age: 61 Year
  Sex: Male
  Weight: 104.3 kg

DRUGS (2)
  1. BYDUREON [Suspect]
     Active Substance: EXENATIDE
     Indication: TYPE 2 DIABETES MELLITUS
     Dosage: ONCE A WEEK
     Route: 058
  2. OTHER MEDICATIONS [Concomitant]
     Active Substance: UNSPECIFIED INGREDIENT

REACTIONS (4)
  - Irritability [Unknown]
  - Blood pressure increased [Unknown]
  - Injection site haemorrhage [Unknown]
  - Depression [Unknown]
